FAERS Safety Report 24611806 (Version 2)
Quarter: 2024Q4

REPORT INFORMATION
  Report Type: Spontaneous
  Country: US (occurrence: US)
  Receive Date: 20241113
  Receipt Date: 20241217
  Transmission Date: 20250114
  Serious: No
  Sender: ROCHE
  Company Number: US-ROCHE-10000125438

PATIENT
  Age: 76 Year
  Sex: Male

DRUGS (10)
  1. ERIVEDGE [Suspect]
     Active Substance: VISMODEGIB
     Indication: Basal cell carcinoma
     Route: 048
     Dates: start: 20240310
  2. CARVEDILOL TAB 12.5MG [Concomitant]
  3. ELIQUIS TAB 5 MG [Concomitant]
  4. OXYCODONE-AC TAB 10-325MG [Concomitant]
  5. TAMSULOSIN H CAP 0.4MG [Concomitant]
  6. ACETAMINOPHEN\HYDROCODONE [Concomitant]
     Active Substance: ACETAMINOPHEN\HYDROCODONE
  7. TIZANIDINE H TAB 4MG [Concomitant]
  8. ANASTROZOLE [Concomitant]
     Active Substance: ANASTROZOLE
  9. CLINDAMYCIN [Concomitant]
     Active Substance: CLINDAMYCIN
  10. DICYCLOMINE TAB 20MG [Concomitant]

REACTIONS (1)
  - Abnormal faeces [Not Recovered/Not Resolved]

NARRATIVE: CASE EVENT DATE: 20240512
